FAERS Safety Report 15760605 (Version 1)
Quarter: 2018Q4

REPORT INFORMATION
  Report Type: Spontaneous
  Country: US (occurrence: US)
  Receive Date: 20181225
  Receipt Date: 20181225
  Transmission Date: 20190205
  Serious: No
  Sender: FDA-Public Use
  Company Number: None

PATIENT
  Age: 36 Year
  Sex: Female
  Weight: 103.5 kg

DRUGS (10)
  1. FEVERFEW [Concomitant]
     Active Substance: FEVERFEW
  2. MAGNESIUM [Concomitant]
     Active Substance: MAGNESIUM
  3. NATURE-THROID [Concomitant]
     Active Substance: THYROID, PORCINE
  4. ZOFRAN [Concomitant]
     Active Substance: ONDANSETRON HYDROCHLORIDE
  5. VITAMIN D [Concomitant]
     Active Substance: CHOLECALCIFEROL
  6. AJOVY [Suspect]
     Active Substance: FREMANEZUMAB-VFRM
     Indication: MIGRAINE
     Dosage: ?          QUANTITY:1 INJECTION(S);OTHER FREQUENCY:ONCE EVERY 30 DAYS;?
     Route: 058
     Dates: start: 20181112, end: 20181217
  7. NALTREXONE [Concomitant]
     Active Substance: NALTREXONE
  8. EPIPEN [Concomitant]
     Active Substance: EPINEPHRINE
  9. VITAMIN K [Concomitant]
     Active Substance: PHYTONADIONE
  10. VITAMIN C [Concomitant]
     Active Substance: ASCORBIC ACID

REACTIONS (8)
  - Impaired work ability [None]
  - Vision blurred [None]
  - Migraine [None]
  - Nausea [None]
  - Photophobia [None]
  - Drug ineffective [None]
  - Hyperacusis [None]
  - Perfume sensitivity [None]

NARRATIVE: CASE EVENT DATE: 20181112
